FAERS Safety Report 6812336-5 (Version None)
Quarter: 2010Q3

REPORT INFORMATION
  Report Type: 
  Country: None (occurrence: None)
  Receive Date: 20100701
  Receipt Date: 20100621
  Transmission Date: 20110219
  Serious: Yes (Hospitalization, Other)
  Sender: FDA-Public Use
  Company Number: PHHY2010JP29128

PATIENT
  Age: 36 Year
  Sex: Female
  Weight: 56 kg

DRUGS (16)
  1. CYCLOSPORINE [Suspect]
     Indication: RENAL TRANSPLANT
     Dosage: 100 MG DAILY
     Route: 048
  2. APRESOLINE [Suspect]
     Indication: BLOOD PRESSURE
     Dosage: 40 MG DAILY
     Route: 048
  3. APRESOLINE [Suspect]
     Route: 041
  4. NICARDIPINE HYDROCHLORIDE [Concomitant]
     Indication: BLOOD PRESSURE
     Route: 048
  5. NICARDIPINE HYDROCHLORIDE [Concomitant]
     Dosage: 0.3 MICROGRAM/KG/MIN
  6. AZATHIOPRINE [Concomitant]
     Dosage: 50 MG/DAY
     Route: 048
  7. ASPIRIN [Concomitant]
     Dosage: 100 MG/DAY
     Route: 048
  8. METHYLDOPA [Concomitant]
     Dosage: 250 MG/DAY
     Route: 048
  9. DARBEPOETIN ALFA [Concomitant]
     Dosage: 60 UG, QW
     Route: 058
  10. BUPIVACAINE HYDROCHLORIDE [Concomitant]
     Indication: ANAESTHESIA
     Dosage: 0.5 %, UNK
     Route: 008
  11. FENTANYL [Concomitant]
     Indication: ANAESTHESIA
     Dosage: 25 UG, UNK
     Route: 008
  12. NITROGLYCERIN [Concomitant]
     Indication: UTERINE ATONY
     Dosage: 0.2 MG, UNK
     Route: 042
  13. LANDIOLOL HYDROCHLORIDE [Concomitant]
  14. PREDNISOLONE [Concomitant]
     Route: 048
  15. CANDESARTAN CILEXETIL [Concomitant]
  16. CILNIDIPINE [Concomitant]

REACTIONS (25)
  - ANAEMIA [None]
  - BLOOD PRESSURE DECREASED [None]
  - CAESAREAN SECTION [None]
  - CARDIOMEGALY [None]
  - DIALYSIS [None]
  - DRUG EXPOSURE DURING PREGNANCY [None]
  - EPIDURAL ANAESTHESIA [None]
  - GESTATIONAL HYPERTENSION [None]
  - HEADACHE [None]
  - HEPATIC FUNCTION ABNORMAL [None]
  - HYPERBILIRUBINAEMIA [None]
  - HYSTEROTOMY [None]
  - NAUSEA [None]
  - OEDEMA PERIPHERAL [None]
  - PLEURAL EFFUSION [None]
  - PRE-ECLAMPSIA [None]
  - PREMATURE LABOUR [None]
  - PULMONARY CONGESTION [None]
  - RENAL IMPAIRMENT [None]
  - STRESS [None]
  - TACHYCARDIA [None]
  - THROMBOCYTOPENIA [None]
  - URINE OUTPUT DECREASED [None]
  - VASCULAR SHUNT [None]
  - WEIGHT INCREASED [None]
